FAERS Safety Report 17311314 (Version 2)
Quarter: 2020Q1

REPORT INFORMATION
  Report Type: Other
  Country: IT (occurrence: IT)
  Receive Date: 20200123
  Receipt Date: 20200327
  Transmission Date: 20200409
  Serious: Yes (Other)
  Sender: FDA-Public Use
  Company Number: IT-CELLTRION INC.-2020IT017760

PATIENT

DRUGS (5)
  1. CARDICOR [Concomitant]
     Active Substance: BISOPROLOL
  2. MICARDIS [Concomitant]
     Active Substance: TELMISARTAN
  3. COUMADIN [Concomitant]
     Active Substance: WARFARIN SODIUM
  4. REMSIMA [Suspect]
     Active Substance: INFLIXIMAB
     Indication: CROHN^S DISEASE
     Dosage: 440 MG
     Route: 042
     Dates: start: 20180116, end: 20191018
  5. DEURSIL [Concomitant]
     Active Substance: URSODIOL

REACTIONS (1)
  - Hepatocellular carcinoma [Not Recovered/Not Resolved]

NARRATIVE: CASE EVENT DATE: 20191018
